FAERS Safety Report 7269860-3 (Version None)
Quarter: 2011Q1

REPORT INFORMATION
  Report Type: 
  Country: None (occurrence: None)
  Receive Date: 20110202
  Receipt Date: 20110126
  Transmission Date: 20110831
  Serious: No
  Sender: FDA-Public Use
  Company Number: KR-JNJFOC-20110107636

PATIENT
  Age: 76 Year
  Sex: Male

DRUGS (2)
  1. DURAGESIC-100 [Suspect]
     Route: 062
  2. DURAGESIC-100 [Suspect]
     Indication: PAIN MANAGEMENT
     Route: 062

REACTIONS (6)
  - DIARRHOEA [None]
  - DYSPNOEA [None]
  - ABDOMINAL DISCOMFORT [None]
  - WRONG TECHNIQUE IN DRUG USAGE PROCESS [None]
  - DRUG ADMINISTRATION ERROR [None]
  - INCORRECT DOSE ADMINISTERED [None]
